FAERS Safety Report 23626373 (Version 1)
Quarter: 2024Q1

REPORT INFORMATION
  Report Type: Report from Study
  Country: CY (occurrence: CY)
  Receive Date: 20240313
  Receipt Date: 20240313
  Transmission Date: 20240410
  Serious: Yes (Other)
  Sender: FDA-Public Use
  Company Number: None

PATIENT
  Age: 41 Year
  Sex: Female
  Weight: 51 kg

DRUGS (28)
  1. CARBOPLATIN [Suspect]
     Active Substance: CARBOPLATIN
     Indication: HER2 positive breast cancer
     Dosage: MOST RECENT DOSE: 16/NOV/2018
     Dates: start: 20181003
  2. CAPECITABINE [Suspect]
     Active Substance: CAPECITABINE
     Indication: HER2 positive breast cancer
     Dosage: MOST RECENT DOSE: 28/MAR/2017
     Dates: start: 20161109
  3. TRASTUZUMAB [Suspect]
     Active Substance: TRASTUZUMAB
     Indication: HER2 positive breast cancer
     Dosage: SOLUTION, MOST RECENT DOSE: 16/MAR/2020, 09/MAR/2017
     Dates: start: 20161104
  4. CYCLOPHOSPHAMIDE [Suspect]
     Active Substance: CYCLOPHOSPHAMIDE
     Indication: HER2 positive breast cancer
     Dosage: MOST RECENT DOSE: 16/DEC/2019
     Dates: start: 20190930
  5. VINORELBINE [Suspect]
     Active Substance: VINORELBINE TARTRATE
     Indication: HER2 positive breast cancer
     Dosage: FREQUENCY: OTHER?MOST RECENT DOSE: 17/SEP/2018
     Dates: start: 20180511
  6. METHOTREXATE [Suspect]
     Active Substance: METHOTREXATE
     Indication: HER2 positive breast cancer
     Dosage: OTHER MOST RECENT DOSE:18/MAY/2020
     Dates: start: 20191216
  7. GEMCITABINE [Suspect]
     Active Substance: GEMCITABINE
     Indication: HER2 positive breast cancer
     Dosage: OTHER?MOST RECENT DOSE: 16/NOV/2018
     Dates: start: 20181003
  8. DOCETAXEL [Suspect]
     Active Substance: DOCETAXEL\DOCETAXEL ANHYDROUS
     Indication: HER2 positive breast cancer
     Dosage: MOST RECENT DOSE: 14/AUG/2019
     Dates: start: 20190523
  9. DOXORUBICIN HYDROCHLORIDE [Suspect]
     Active Substance: DOXORUBICIN HYDROCHLORIDE
     Indication: HER2 positive breast cancer
     Dosage: FREQ:4 WK;ON 28/MAR/2019, INTRAVENOUS DOXORUBICIN DOXORUBICIN 40 MG EVERY 4 WEEK.
     Route: 042
     Dates: start: 20190328, end: 20190402
  10. ADO-TRASTUZUMAB EMTANSINE [Suspect]
     Active Substance: ADO-TRASTUZUMAB EMTANSINE
     Indication: HER2 positive breast cancer
     Dosage: SOLUTION, MOST RECENT DOSE 16/APR/2018
     Dates: start: 20170403
  11. EPIRUBICIN [Suspect]
     Active Substance: EPIRUBICIN
     Indication: HER2 positive breast cancer
     Dosage: MOST RECENT DOSE: 15/NOV/2019
     Dates: start: 20190930
  12. IBUPROFEN [Concomitant]
     Active Substance: IBUPROFEN
     Indication: Headache
     Dates: start: 20190112
  13. LAPATINIB [Suspect]
     Active Substance: LAPATINIB
     Indication: HER2 positive breast cancer
     Dosage: MOST RECENT DOSE: 08/MAR/2019
     Dates: start: 20180212
  14. FLUOROURACIL [Suspect]
     Active Substance: FLUOROURACIL
     Indication: HER2 positive breast cancer
     Dosage: OTHER MOST RECENT DOSE: 28/MAY/2020
     Dates: start: 20191216
  15. VALPROATE SODIUM [Concomitant]
     Active Substance: VALPROATE SODIUM
     Indication: Muscle spasticity
     Dosage: ONGOING  CHECKED
     Dates: start: 20191223
  16. CANNABIS SATIVA FLOWERING TOP [Concomitant]
     Active Substance: CANNABIS SATIVA FLOWERING TOP
     Dosage: ONGOING  CHECKED
     Dates: start: 20190606
  17. CALCIUM [Concomitant]
     Active Substance: CALCIUM
     Dates: start: 20170306
  18. DEXAMETHASONE [Concomitant]
     Active Substance: DEXAMETHASONE
     Dates: start: 20190422
  19. KEPPRA [Concomitant]
     Active Substance: LEVETIRACETAM
     Dosage: ONGOING  CHECKED
     Dates: start: 20200211
  20. OMEPRAZOLE [Concomitant]
     Active Substance: OMEPRAZOLE
     Dates: start: 20180511
  21. LEUCOVORIN [Concomitant]
     Active Substance: LEUCOVORIN\LEUCOVORIN CALCIUM
     Dosage: ONGOING  NOT CHECKED
     Dates: start: 20191214, end: 20200421
  22. LAMICTAL [Concomitant]
     Active Substance: LAMOTRIGINE
     Indication: Muscle spasticity
     Dosage: ONGOING  CHECKED
     Dates: start: 20200309
  23. MAGNESIUM [Concomitant]
     Active Substance: MAGNESIUM
     Dates: start: 20180706
  24. ACETAMINOPHEN [Concomitant]
     Active Substance: ACETAMINOPHEN
     Indication: Headache
     Dates: start: 20161109
  25. EMEND [Concomitant]
     Active Substance: APREPITANT
     Dosage: ONGOING  CHECKED
     Dates: start: 20190930
  26. SULFAMETHOXAZOLE\TRIMETHOPRIM [Concomitant]
     Active Substance: SULFAMETHOXAZOLE\TRIMETHOPRIM
     Dosage: ONGOING  CHECKED
     Dates: start: 20190612
  27. ZOLEDRONIC ACID [Concomitant]
     Active Substance: ZOLEDRONIC ACID
     Dosage: ONGOING  NOT CHECKED
     Dates: start: 20161109, end: 20200625
  28. ACETAMINOPHEN [Concomitant]
     Active Substance: ACETAMINOPHEN
     Indication: Headache
     Dosage: UNK
     Dates: start: 20180525

REACTIONS (1)
  - Deep vein thrombosis [Not Recovered/Not Resolved]

NARRATIVE: CASE EVENT DATE: 20200514
